FAERS Safety Report 7107116 (Version 7)
Quarter: 2014Q1

REPORT INFORMATION
  Report Type: Report from Study
  Country: GB (occurrence: None)
  Receive Date: 20090826
  Receipt Date: 20140304
  Transmission Date: 20141002
  Serious: Yes (Life-Threatening, Hospitalization)
  Sender: FDA-Public Use
  Company Number: 2009218680

PATIENT
  Age: 78 Year
  Sex: Male

DRUGS (6)
  1. DALTEPARIN SODIUM [Suspect]
     Indication: LUNG NEOPLASM MALIGNANT
     Dosage: 5000 IU, 1X/DAY
     Route: 058
     Dates: start: 20090310, end: 20090525
  2. CARBOPLATIN [Suspect]
  3. GEMCITABINE [Suspect]
     Route: 048
     Dates: start: 20001205, end: 20090525
  4. ASPIRIN [Suspect]
     Dosage: ORAL
     Route: 048
     Dates: start: 20001205, end: 20090525
  5. SOTALOL   (SOTALOL) [Concomitant]
  6. SIMVASTATIN [Concomitant]

REACTIONS (5)
  - Epistaxis [None]
  - Platelet count decreased [None]
  - White blood cell count decreased [None]
  - Haemoglobin decreased [None]
  - Neutropenia [None]
